FAERS Safety Report 9979033 (Version 4)
Quarter: 2015Q1

REPORT INFORMATION
  Report Type: Report from Study
  Country: US (occurrence: US)
  Receive Date: 20140306
  Receipt Date: 20150320
  Transmission Date: 20150721
  Serious: Yes (Hospitalization, Other)
  Sender: FDA-Public Use
  Company Number: US-ABBVIE-13P-163-1170275-00

PATIENT
  Age: 73 Year
  Sex: Female
  Weight: 63.11 kg

DRUGS (13)
  1. COUMADIN [Interacting]
     Active Substance: WARFARIN SODIUM
     Indication: ATRIAL FIBRILLATION
     Route: 065
  2. CLOBETASOL [Concomitant]
     Active Substance: CLOBETASOL
     Indication: PRODUCT USED FOR UNKNOWN INDICATION
  3. ATORVASTATIN [Concomitant]
     Active Substance: ATORVASTATIN
     Indication: BLOOD CHOLESTEROL INCREASED
     Route: 065
  4. HUMIRA [Suspect]
     Active Substance: ADALIMUMAB
     Route: 065
     Dates: start: 20150306
  5. HUMIRA [Suspect]
     Active Substance: ADALIMUMAB
     Indication: PSORIATIC ARTHROPATHY
     Dosage: ON WEEK AFTER 80MG DOSE
     Route: 065
     Dates: start: 201411
  6. WARFARIN [Concomitant]
     Active Substance: WARFARIN
     Indication: ANTICOAGULANT THERAPY
  7. HUMIRA [Suspect]
     Active Substance: ADALIMUMAB
     Indication: PSORIASIS
     Route: 065
  8. HUMIRA [Suspect]
     Active Substance: ADALIMUMAB
     Route: 065
     Dates: start: 20150227, end: 20150227
  9. SIMVASTATIN. [Concomitant]
     Active Substance: SIMVASTATIN
     Indication: BLOOD CHOLESTEROL INCREASED
  10. TYLENOL [Concomitant]
     Active Substance: ACETAMINOPHEN
     Indication: PAIN
  11. AUGMENTIN [Interacting]
     Active Substance: AMOXICILLIN\CLAVULANATE POTASSIUM
     Indication: STREPTOCOCCAL INFECTION
     Route: 065
     Dates: start: 2014, end: 2014
  12. JANTOVEN [Concomitant]
     Active Substance: WARFARIN SODIUM
     Indication: ATRIAL FIBRILLATION
     Route: 065
  13. XANAX [Concomitant]
     Active Substance: ALPRAZOLAM
     Indication: ANXIETY

REACTIONS (19)
  - Heart rate increased [Unknown]
  - Hypertension [Unknown]
  - Atrial fibrillation [Unknown]
  - Hypertension [Unknown]
  - Peripheral swelling [Not Recovered/Not Resolved]
  - Psoriasis [Not Recovered/Not Resolved]
  - Streptococcal infection [Recovered/Resolved]
  - Psoriatic arthropathy [Not Recovered/Not Resolved]
  - Haemoptysis [Recovered/Resolved]
  - Local swelling [Not Recovered/Not Resolved]
  - Back pain [Unknown]
  - Magnesium deficiency [Unknown]
  - Asthenia [Recovered/Resolved]
  - Drug ineffective [Not Recovered/Not Resolved]
  - Cough [Recovered/Resolved]
  - Bronchitis [Recovered/Resolved]
  - Productive cough [Not Recovered/Not Resolved]
  - Blood urine present [Recovered/Resolved]
  - Haematochezia [Recovered/Resolved]

NARRATIVE: CASE EVENT DATE: 2013
